FAERS Safety Report 9336859 (Version 2)
Quarter: 2013Q3

REPORT INFORMATION
  Report Type: Spontaneous
  Country: US (occurrence: US)
  Receive Date: 20130607
  Receipt Date: 20130718
  Transmission Date: 20140515
  Serious: Yes (Congenital Anomaly)
  Sender: FDA-Public Use
  Company Number: US-PFIZER INC-2013170900

PATIENT
  Sex: Male

DRUGS (23)
  1. ZOLOFT [Suspect]
     Dosage: UNK
     Route: 064
     Dates: start: 20040521, end: 20070103
  2. ZOLOFT [Suspect]
     Dosage: UNK
     Route: 064
     Dates: start: 20080227, end: 20080930
  3. SERTRALINE HCL [Suspect]
     Dosage: UNK
     Route: 064
     Dates: start: 20040521, end: 20070103
  4. SERTRALINE HCL [Suspect]
     Dosage: UNK
     Route: 064
     Dates: start: 20080227, end: 20080930
  5. PRENATAL VITAMINS [Concomitant]
     Dosage: UNK
     Route: 064
  6. GABAPENTIN [Concomitant]
     Dosage: UNK
     Route: 064
  7. PENTOSAN POLYSULFATE SODIUM [Concomitant]
     Dosage: UNK
     Route: 064
  8. AMOXICILLIN TRIHYDRATE/CLAVULANATE POTASSIUM [Concomitant]
     Dosage: UNK
     Route: 064
  9. TOLTERODINE TARTRATE [Concomitant]
     Dosage: UNK
     Route: 064
  10. ACETAMINOPHEN [Concomitant]
     Dosage: UNK
     Route: 064
  11. AZITHROMYCIN [Concomitant]
     Dosage: UNK
     Route: 064
  12. PROMETHAZINE [Concomitant]
     Dosage: UNK
     Route: 064
  13. IBUPROFEN [Concomitant]
     Dosage: UNK
     Route: 064
  14. METOCLOPRAMIDE [Concomitant]
     Dosage: UNK
     Route: 064
  15. DIPHENHYDRAMINE HYDROCHLORIDE [Concomitant]
     Dosage: UNK
     Route: 064
  16. NITROFURANTOIN MONOHYDRATE [Concomitant]
     Dosage: UNK
     Route: 064
  17. NORMENSAL [Concomitant]
     Dosage: UNK
     Route: 064
  18. VALTREX [Concomitant]
     Dosage: UNK
     Route: 064
  19. NAPROXEN [Concomitant]
     Dosage: UNK
     Route: 064
  20. LEVOTHYROXINE SODIUM [Concomitant]
     Dosage: UNK
     Route: 064
  21. NYSTADERMAL [Concomitant]
     Dosage: UNK
     Route: 064
  22. MUPIROCIN [Concomitant]
     Dosage: UNK
     Route: 064
  23. NORINYL [Concomitant]
     Dosage: UNK
     Route: 064

REACTIONS (5)
  - Atrial septal defect [Unknown]
  - Cardiac murmur [Unknown]
  - Congenital anomaly [Unknown]
  - Premature baby [Unknown]
  - Maternal exposure during pregnancy [Unknown]
